FAERS Safety Report 13840959 (Version 1)
Quarter: 2017Q3

REPORT INFORMATION
  Report Type: Spontaneous
  Country: BR (occurrence: BR)
  Receive Date: 20170807
  Receipt Date: 20170807
  Transmission Date: 20171127
  Serious: Yes (Other)
  Sender: FDA-Public Use
  Company Number: BR-PFIZER INC-2017319525

PATIENT
  Sex: Female

DRUGS (1)
  1. PREMARIN [Suspect]
     Active Substance: ESTROGENS, CONJUGATED
     Indication: TURNER^S SYNDROME
     Dosage: 0.625 MG, UNK
     Dates: start: 2017

REACTIONS (3)
  - Product use in unapproved indication [Unknown]
  - Developmental delay [Unknown]
  - Growth failure [Unknown]

NARRATIVE: CASE EVENT DATE: 2017
